FAERS Safety Report 7550305-0 (Version None)
Quarter: 2011Q2

REPORT INFORMATION
  Report Type: 
  Country: None (occurrence: None)
  Receive Date: 20110615
  Receipt Date: 20110531
  Transmission Date: 20111010
  Serious: Yes (Hospitalization)
  Sender: FDA-Public Use
  Company Number: IT-BAYER-2011-046880

PATIENT
  Age: 19 Year
  Sex: Male

DRUGS (5)
  1. ASPIRIN [Suspect]
     Indication: SUICIDE ATTEMPT
     Dosage: 400 MG, ONCE
     Route: 048
     Dates: start: 20110514
  2. DELORAZEPAM [Suspect]
     Indication: SUICIDE ATTEMPT
     Dosage: 10 MG, ONCE
     Route: 048
     Dates: start: 20110514
  3. ACETAMINOPHEN [Concomitant]
     Indication: CHRONIC SINUSITIS
     Dosage: DAILY DOSE 500 MG
     Route: 048
  4. SEROQUEL [Suspect]
     Indication: SUICIDE ATTEMPT
     Dosage: 1200 MG, ONCE
     Route: 048
     Dates: start: 20110514
  5. AUGMENTIN '125' [Suspect]
     Indication: SUICIDE ATTEMPT
     Dosage: 2000 MG, ONCE
     Route: 048
     Dates: start: 20110514

REACTIONS (3)
  - BRADYPHRENIA [None]
  - SOPOR [None]
  - HYPOKINESIA [None]
